FAERS Safety Report 4831327-7 (Version None)
Quarter: 2005Q4

REPORT INFORMATION
  Report Type: 
  Country: None (occurrence: None)
  Receive Date: 20051114
  Receipt Date: 20051027
  Transmission Date: 20060501
  Serious: Yes (Hospitalization)
  Sender: FDA-Public Use
  Company Number: 219110

PATIENT
  Age: 52 Year
  Sex: Male
  Weight: 67.8 kg

DRUGS (16)
  1. AVASTIN [Suspect]
     Indication: COLON CANCER
     Dosage: 362.5 MG, Q2W, INTRAVENOUS
     Route: 042
     Dates: start: 20050601, end: 20051024
  2. OXALIPLATIN (OXALIPLATIN) [Suspect]
     Indication: COLON CANCER
     Dosage: 140 MG, Q2W, INTRAVENOUS
     Route: 042
     Dates: start: 20050601, end: 20051024
  3. FLUOROURACIL [Suspect]
     Indication: COLON CANCER
     Dosage: 550 MG, Q2W, INTRAVENOUS
     Route: 042
     Dates: start: 20050601, end: 20051024
  4. LEUCOVORIN CALCIUM [Suspect]
     Indication: COLON CANCER
     Dosage: 350 MG, Q2W, INTRAVENOUS
     Route: 040
     Dates: start: 20050601, end: 20051024
  5. GRANISETRON (GRANISTRON HYDROCHLORIDE) [Concomitant]
  6. DEXAMETHASONE [Concomitant]
  7. DOMPERIDONE (DOMPERIDONE) [Concomitant]
  8. SLOW-K [Concomitant]
  9. THIAMINE (THIAMINE HYDROCHLORIDE) [Concomitant]
  10. VITAMIN B NOS (VITAMIN B NOS) [Concomitant]
  11. PENTASA [Concomitant]
  12. TRAMADOL HCL [Concomitant]
  13. ACETAMINOPHEN [Concomitant]
  14. FERROUS SULFATE TAB [Concomitant]
  15. METRONIDAZOLE [Concomitant]
  16. CEFTRIAXONE (CEFTRIAZONE SODIUM) [Concomitant]

REACTIONS (2)
  - DEHYDRATION [None]
  - DIARRHOEA [None]
